FAERS Safety Report 21785769 (Version 2)
Quarter: 2023Q1

REPORT INFORMATION
  Report Type: Spontaneous
  Country: US (occurrence: US)
  Receive Date: 20221227
  Receipt Date: 20230119
  Transmission Date: 20230418
  Serious: No
  Sender: FDA-Public Use
  Company Number: US-SA-SAC20221226000429

PATIENT
  Age: 49 Year
  Sex: Male

DRUGS (1)
  1. DUPIXENT [Suspect]
     Active Substance: DUPILUMAB
     Dosage: 300 MG; OTHER
     Route: 058
     Dates: start: 202209

REACTIONS (9)
  - Injection site discharge [Unknown]
  - Depressed mood [Unknown]
  - Cough variant asthma [Unknown]
  - Ear congestion [Unknown]
  - Speech sound disorder [Unknown]
  - Middle ear effusion [Unknown]
  - Toothache [Unknown]
  - Injection site swelling [Unknown]
  - Drug ineffective [Unknown]

NARRATIVE: CASE EVENT DATE: 20221010
